FAERS Safety Report 6878181-X (Version None)
Quarter: 2010Q3

REPORT INFORMATION
  Report Type: 
  Country: None (occurrence: None)
  Receive Date: 20100728
  Receipt Date: 20100714
  Transmission Date: 20110219
  Serious: Yes (Hospitalization, Other)
  Sender: FDA-Public Use
  Company Number: US-PFIZER INC-2010088206

PATIENT
  Sex: Male
  Weight: 89.34 kg

DRUGS (3)
  1. DILANTIN [Suspect]
     Indication: CONVULSION
     Dosage: 1000 MG, UNK
     Route: 042
  2. DILANTIN [Suspect]
     Dosage: 300 MG, 1X/DAY
     Route: 048
  3. FLEXERIL [Concomitant]
     Indication: MUSCLE RELAXANT THERAPY
     Dosage: UNK MG, UNK
     Route: 048
     Dates: start: 19960101

REACTIONS (4)
  - CONVULSION [None]
  - DEEP VEIN THROMBOSIS [None]
  - THROMBOSIS [None]
  - TREATMENT NONCOMPLIANCE [None]
